FAERS Safety Report 7673532-0 (Version None)
Quarter: 2011Q3

REPORT INFORMATION
  Report Type: 
  Country: None (occurrence: None)
  Receive Date: 20110810
  Receipt Date: 20110727
  Transmission Date: 20111222
  Serious: Yes (Other)
  Sender: FDA-Public Use
  Company Number: ES-UCBSA-037926

PATIENT
  Age: 74 Year
  Sex: Female

DRUGS (10)
  1. AMLODIPINE [Interacting]
     Indication: HYPERTENSION
     Route: 048
     Dates: start: 20110613, end: 20110624
  2. KEPPRA [Suspect]
     Indication: CONVULSION
     Route: 048
     Dates: start: 20110604, end: 20110623
  3. HIDROALTESONA [Interacting]
     Indication: HYPOPITUITARISM
     Route: 048
  4. FUROSEMIDE [Interacting]
     Indication: HYPERTENSION
     Route: 048
     Dates: start: 20110613, end: 20110624
  5. ATORVASTATIN [Interacting]
     Indication: CEREBROVASCULAR ACCIDENT
     Route: 048
     Dates: start: 20110604, end: 20110623
  6. ASPIRIN [Interacting]
     Indication: CEREBROVASCULAR ACCIDENT
     Route: 048
     Dates: start: 20110604, end: 20110623
  7. LEVOTHYROXINE SODIUM [Interacting]
     Indication: HYPOPITUITARISM
     Route: 048
  8. LISINOPRIL [Interacting]
     Indication: HYPERTENSION
     Route: 048
     Dates: start: 20110613, end: 20110624
  9. NEXIUM [Interacting]
     Indication: GASTROINTESTINAL HAEMORRHAGE
     Route: 048
     Dates: start: 20110613, end: 20110624
  10. PLAVIX [Interacting]
     Indication: CEREBROVASCULAR ACCIDENT
     Route: 048
     Dates: start: 20110604, end: 20110624

REACTIONS (2)
  - DRUG INTERACTION [None]
  - HEPATITIS TOXIC [None]
